FAERS Safety Report 5340083-8 (Version None)
Quarter: 2007Q2

REPORT INFORMATION
  Report Type: 
  Country: None (occurrence: None)
  Receive Date: 20070525
  Receipt Date: 20070525
  Transmission Date: 20071010
  Serious: Yes (Hospitalization)
  Sender: FDA-Public Use
  Company Number: None

PATIENT
  Age: 66 Year
  Sex: Female
  Weight: 109 kg

DRUGS (11)
  1. OXYCONTIN [Suspect]
     Indication: CANCER PAIN
     Dosage: 40 MG Q8H PO DOSE INCREASED YESTERDAY FROM 20G BID
     Route: 048
  2. COLACE [Concomitant]
  3. LOVENOX [Concomitant]
  4. EPOGEN [Concomitant]
  5. COZAAR [Concomitant]
  6. SOLU-MEDROL [Concomitant]
  7. REGLAN [Concomitant]
  8. PROTONIX [Concomitant]
  9. OXYCONTIN [Concomitant]
  10. DILAUDID [Concomitant]
  11. OXYCODONE HCL [Concomitant]

REACTIONS (7)
  - ANAEMIA [None]
  - DEPRESSED LEVEL OF CONSCIOUSNESS [None]
  - HYPOTENSION [None]
  - PAIN [None]
  - RENAL FAILURE [None]
  - RESPIRATORY DEPRESSION [None]
  - SEDATION [None]
